FAERS Safety Report 7605624-6 (Version None)
Quarter: 2011Q3

REPORT INFORMATION
  Report Type: 
  Country: None (occurrence: None)
  Receive Date: 20110713
  Receipt Date: 20110706
  Transmission Date: 20111222
  Serious: Yes (Hospitalization)
  Sender: FDA-Public Use
  Company Number: NL-JNJFOC-20110603626

PATIENT
  Sex: Male
  Weight: 52.7 kg

DRUGS (8)
  1. ONDANSETRON [Concomitant]
  2. LOPERAMIDE [Concomitant]
  3. FOLIUMZUUR [Concomitant]
  4. PANTOPRAZOLE [Concomitant]
  5. REMICADE [Suspect]
     Route: 042
     Dates: start: 20110419
  6. REMICADE [Suspect]
     Indication: CROHN'S DISEASE
     Route: 042
     Dates: start: 20110209
  7. METHOTREXATE [Suspect]
     Indication: CROHN'S DISEASE
  8. CALCIUM CARBONATE [Concomitant]

REACTIONS (1)
  - CROHN'S DISEASE [None]
